FAERS Safety Report 13924129 (Version 2)
Quarter: 2017Q3

REPORT INFORMATION
  Report Type: Spontaneous
  Country: IT (occurrence: IT)
  Receive Date: 20170831
  Receipt Date: 20170914
  Transmission Date: 20171127
  Serious: Yes (Other)
  Sender: FDA-Public Use
  Company Number: IT-ACCORD-057758

PATIENT
  Age: 41 Year
  Sex: Female
  Weight: 55 kg

DRUGS (2)
  1. CAPECITABINE. [Suspect]
     Active Substance: CAPECITABINE
     Indication: BREAST CANCER STAGE IV
     Route: 048
     Dates: start: 20170505
  2. NAVELBINE [Concomitant]
     Active Substance: VINORELBINE TARTRATE
     Indication: BREAST CANCER STAGE IV
     Route: 042
     Dates: start: 20170505

REACTIONS (4)
  - Palpitations [Recovering/Resolving]
  - Chest discomfort [Recovering/Resolving]
  - Dyspnoea exertional [Recovering/Resolving]
  - Ischaemia [Recovering/Resolving]

NARRATIVE: CASE EVENT DATE: 20170507
